FAERS Safety Report 7384439-0 (Version None)
Quarter: 2011Q1

REPORT INFORMATION
  Report Type: 
  Country: None (occurrence: None)
  Receive Date: 20110330
  Receipt Date: 20110325
  Transmission Date: 20110831
  Serious: Yes (Other)
  Sender: FDA-Public Use
  Company Number: US-ABBOTT-11P-163-0712752-00

PATIENT
  Sex: Female
  Weight: 62.652 kg

DRUGS (6)
  1. ASPIRIN [Concomitant]
     Indication: PROPHYLAXIS
  2. SIMCOR [Suspect]
     Indication: BLOOD CHOLESTEROL INCREASED
  3. AMBIEN [Concomitant]
     Indication: INSOMNIA
  4. SIMCOR [Suspect]
     Indication: BLOOD CHOLESTEROL INCREASED
     Dosage: 750/20 MG
     Dates: start: 20110318
  5. SIMCOR [Suspect]
     Indication: LOW DENSITY LIPOPROTEIN INCREASED
     Dosage: 500MG/20MG
     Dates: start: 20091201, end: 20100317
  6. SIMCOR [Suspect]
     Indication: HIGH DENSITY LIPOPROTEIN DECREASED

REACTIONS (5)
  - DRY THROAT [None]
  - NIGHT SWEATS [None]
  - UTERINE CANCER [None]
  - PARAESTHESIA [None]
  - ABDOMINAL PAIN [None]
